FAERS Safety Report 5746056-5 (Version None)
Quarter: 2008Q2

REPORT INFORMATION
  Report Type: 
  Country: None (occurrence: None)
  Receive Date: 20080522
  Receipt Date: 20080513
  Transmission Date: 20081010
  Serious: Yes (Other)
  Sender: FDA-Public Use
  Company Number: US-JNJFOC-20080503099

PATIENT
  Sex: Female
  Weight: 76.2 kg

DRUGS (5)
  1. FENTANYL TRANSDERMAL SYSTEM [Suspect]
     Indication: BACK PAIN
     Route: 062
  2. LISINOPRIL [Concomitant]
     Indication: HYPERTENSION
     Dosage: 20/ 12.5 MG
     Route: 048
  3. PROCARDIA XL [Concomitant]
     Indication: HYPERTENSION
     Route: 048
  4. KLONOPIN [Concomitant]
     Indication: ANXIETY
     Dosage: 3 MG, 2 MG AND 1.5 MG TABLETS
     Route: 048
  5. EPIDURALS [Concomitant]
     Indication: BACK PAIN
     Route: 037

REACTIONS (5)
  - APPLICATION SITE IRRITATION [None]
  - APPLICATION SITE SWELLING [None]
  - DRUG ADMINISTERED AT INAPPROPRIATE SITE [None]
  - RESTLESS LEGS SYNDROME [None]
  - WRONG TECHNIQUE IN DRUG USAGE PROCESS [None]
